FAERS Safety Report 9385222 (Version 1)
Quarter: 2013Q3

REPORT INFORMATION
  Report Type: Spontaneous
  Country: JM (occurrence: JM)
  Receive Date: 20130705
  Receipt Date: 20130705
  Transmission Date: 20140515
  Serious: Yes (Death)
  Sender: FDA-Public Use
  Company Number: JM-B.I. PHARMACEUTICALS,INC./RIDGEFIELD-2013-CN-01186CN

PATIENT
  Sex: Female

DRUGS (1)
  1. PRADAX [Suspect]
     Indication: ATRIAL FIBRILLATION

REACTIONS (1)
  - Gastrointestinal haemorrhage [Fatal]
